FAERS Safety Report 23428000 (Version 1)
Quarter: 2024Q1

REPORT INFORMATION
  Report Type: Spontaneous
  Country: US (occurrence: None)
  Receive Date: 20240121
  Receipt Date: 20240121
  Transmission Date: 20240410
  Serious: Yes (Other)
  Sender: FDA-Public Use
  Company Number: None

PATIENT
  Age: 62 Year
  Sex: Female
  Weight: 95.4 kg

DRUGS (14)
  1. OZEMPIC [Suspect]
     Active Substance: SEMAGLUTIDE
     Indication: Glucose tolerance impaired
     Dosage: OTHER QUANTITY : 1 INJECTION(S);?OTHER FREQUENCY : WEEKLY;?
     Route: 058
  2. OZEMPIC [Suspect]
     Active Substance: SEMAGLUTIDE
     Indication: Obesity
  3. SYNTHROID [Concomitant]
     Active Substance: LEVOTHYROXINE SODIUM
  4. gabapaentin [Concomitant]
  5. DULOXETINE [Concomitant]
     Active Substance: DULOXETINE
  6. VITAMIN D2 [Concomitant]
     Active Substance: ERGOCALCIFEROL
  7. REPATHA [Concomitant]
     Active Substance: EVOLOCUMAB
  8. TRULICITY [Concomitant]
     Active Substance: DULAGLUTIDE
  9. ASPIRIN [Concomitant]
     Active Substance: ASPIRIN
  10. CALCIUM [Concomitant]
     Active Substance: CALCIUM
  11. VITAMINS [Concomitant]
     Active Substance: VITAMINS
  12. TYLENOL [Concomitant]
     Active Substance: ACETAMINOPHEN
  13. ZYRTEC [Concomitant]
     Active Substance: CETIRIZINE HYDROCHLORIDE
  14. MOTRIN [Concomitant]
     Active Substance: IBUPROFEN

REACTIONS (7)
  - Pain in extremity [None]
  - Back pain [None]
  - Burning sensation [None]
  - Skin burning sensation [None]
  - Rash [None]
  - Therapy cessation [None]
  - Neuropathy peripheral [None]

NARRATIVE: CASE EVENT DATE: 20231110
